FAERS Safety Report 6469745-6 (Version None)
Quarter: 2009Q4

REPORT INFORMATION
  Report Type: 
  Country: None (occurrence: None)
  Receive Date: 20091201
  Receipt Date: 20091119
  Transmission Date: 20100525
  Serious: Yes (Hospitalization)
  Sender: FDA-Public Use
  Company Number: GP-09-11-0019

PATIENT
  Age: 29 Year
  Sex: Male

DRUGS (3)
  1. LITHIUM (UNK, UNK) [Suspect]
     Indication: MANIA
     Dosage: 1200 MG/DAY PO
     Route: 048
  2. CLOZAPINE [Suspect]
     Indication: SCHIZOAFFECTIVE DISORDER BIPOLAR TYPE
     Dosage: 125-500 MG/DAY PO; SEVERAL YEARS
     Route: 048
  3. VALPROIC ACID [Concomitant]

REACTIONS (4)
  - DISEASE RECURRENCE [None]
  - MANIA [None]
  - RHABDOMYOLYSIS [None]
  - SCHIZOAFFECTIVE DISORDER [None]
